FAERS Safety Report 5766798-5 (Version None)
Quarter: 2008Q2

REPORT INFORMATION
  Report Type: 
  Country: None (occurrence: None)
  Receive Date: 20080610
  Receipt Date: 20080610
  Transmission Date: 20081010
  Serious: Yes (Hospitalization)
  Sender: FDA-Public Use
  Company Number: None

PATIENT
  Age: 74 Year
  Sex: Male
  Weight: 86 kg

DRUGS (16)
  1. DOCETAXEL [Suspect]
     Indication: OESOPHAGEAL CARCINOMA
     Dosage: 51 MG WKLY X 3 Q 28 DAYS IV DRIP
     Route: 041
     Dates: start: 20060822, end: 20061019
  2. CARBOPLATIN [Suspect]
     Indication: OESOPHAGEAL CARCINOMA
     Dosage: 181 MG WKLY X 3 Q 28 DAYS IV DRIP
     Route: 041
     Dates: start: 20060822, end: 20061019
  3. ASPIRIN [Concomitant]
  4. WELCHOL [Concomitant]
  5. DOXAZOSIN MESYLATE [Concomitant]
  6. DUTASERIDE [Concomitant]
  7. FENTANYL-100 [Concomitant]
  8. HYDROCHLOROTHIAZIDE [Concomitant]
  9. LASIX [Concomitant]
  10. METFORMIN HCL [Concomitant]
  11. LENTIS INSULIN [Concomitant]
  12. BENICAR [Concomitant]
  13. METOPROLOL [Concomitant]
  14. ONDANSETRON PRN [Concomitant]
  15. COMPAZINE PRN [Concomitant]
  16. PYRIDOXIME [Concomitant]

REACTIONS (17)
  - ABSCESS [None]
  - ASTHENIA [None]
  - BLOOD GLUCOSE DECREASED [None]
  - DECREASED APPETITE [None]
  - DEHYDRATION [None]
  - DIARRHOEA [None]
  - FEBRILE NEUTROPENIA [None]
  - FISTULA [None]
  - HEART RATE INCREASED [None]
  - HYPOTENSION [None]
  - KLEBSIELLA BACTERAEMIA [None]
  - NAUSEA [None]
  - OPEN WOUND [None]
  - PNEUMONIA [None]
  - SEPSIS [None]
  - VOMITING [None]
  - WHITE BLOOD CELL COUNT DECREASED [None]
